FAERS Safety Report 10983967 (Version 1)
Quarter: 2015Q2

REPORT INFORMATION
  Report Type: Spontaneous
  Country: US (occurrence: US)
  Receive Date: 20150403
  Receipt Date: 20150403
  Transmission Date: 20150821
  Serious: No
  Sender: FDA-Public Use
  Company Number: US-PFIZER INC-2015113089

PATIENT
  Age: 76 Year
  Sex: Male

DRUGS (1)
  1. SUTENT [Suspect]
     Active Substance: SUNITINIB MALATE
     Indication: CONNECTIVE TISSUE NEOPLASM
     Dosage: 37.5 MG, DAILY
     Route: 048
     Dates: start: 20150304, end: 20150320

REACTIONS (10)
  - Fatigue [Unknown]
  - Headache [Recovering/Resolving]
  - Abdominal pain upper [Unknown]
  - Yellow skin [Unknown]
  - Blood pressure increased [Recovered/Resolved]
  - Chromaturia [Unknown]
  - Pyrexia [Recovering/Resolving]
  - Chills [Unknown]
  - Upper respiratory tract infection [Unknown]
  - Platelet count decreased [Unknown]

NARRATIVE: CASE EVENT DATE: 20150324
